FAERS Safety Report 4412351-5 (Version None)
Quarter: 2004Q3

REPORT INFORMATION
  Report Type: 
  Country: None (occurrence: None)
  Receive Date: 20040730
  Receipt Date: 20040727
  Transmission Date: 20050211
  Serious: Yes (Other)
  Sender: FDA-Public Use
  Company Number: US-MERCK-0407USA02393

PATIENT
  Age: 79 Year
  Sex: Female

DRUGS (7)
  1. TYLENOL [Concomitant]
     Route: 065
  2. LOTREL [Concomitant]
     Route: 065
  3. GLUCOSAMINE [Concomitant]
     Route: 065
  4. LEVOXYL [Concomitant]
     Route: 065
  5. TOPROL-XL [Concomitant]
     Route: 065
  6. PRAVACHOL [Concomitant]
     Route: 065
  7. VIOXX [Suspect]
     Indication: ARTHRITIS
     Route: 048
     Dates: start: 20000101

REACTIONS (3)
  - MYOCARDIAL INFARCTION [None]
  - PAIN [None]
  - THERAPEUTIC RESPONSE DECREASED [None]
